FAERS Safety Report 5386787-2 (Version None)
Quarter: 2007Q3

REPORT INFORMATION
  Report Type: 
  Country: None (occurrence: None)
  Receive Date: 20070713
  Receipt Date: 20070702
  Transmission Date: 20080115
  Serious: Yes (Death, Hospitalization, Other)
  Sender: FDA-Public Use
  Company Number: US-PFIZER INC-2006119844

PATIENT

DRUGS (3)
  1. CELEBREX [Suspect]
     Indication: PAIN
  2. BEXTRA [Suspect]
     Indication: PAIN
     Dates: start: 20020404, end: 20040909
  3. VIOXX [Suspect]
     Route: 048
     Dates: start: 20020210, end: 20020801

REACTIONS (1)
  - MYOCARDIAL INFARCTION [None]
